FAERS Safety Report 5025627-8 (Version None)
Quarter: 2006Q2

REPORT INFORMATION
  Report Type: 
  Country: None (occurrence: None)
  Receive Date: 20060426
  Receipt Date: 20060319
  Transmission Date: 20061013
  Serious: Yes (Other)
  Sender: FDA-Public Use
  Company Number: 2006038087

PATIENT
  Age: 56 Year
  Sex: Male
  Weight: 68.0396 kg

DRUGS (5)
  1. LYRICA [Suspect]
     Indication: PAIN IN EXTREMITY
     Dosage: 300 MG, (150 MG, 2 IN 1 D), ORAL
     Route: 048
     Dates: start: 20060101
  2. METHADONE HCL [Concomitant]
  3. DIAMPLICIL (AMPICILLIN, DICLOXACILLIN) [Concomitant]
  4. MORPHINE [Concomitant]
  5. GLYBURIDE [Concomitant]

REACTIONS (1)
  - BLOOD GLUCOSE DECREASED [None]
